FAERS Safety Report 8035559-9 (Version None)
Quarter: 2012Q1

REPORT INFORMATION
  Report Type: 
  Country: None (occurrence: None)
  Receive Date: 20120110
  Receipt Date: 20120110
  Transmission Date: 20120608
  Serious: No
  Sender: FDA-Public Use
  Company Number: None

PATIENT
  Sex: Female
  Weight: 81.6475 kg

DRUGS (1)
  1. WELCHOL [Suspect]
     Indication: BLOOD CHOLESTEROL ABNORMAL
     Dosage: 625 MG 6 PILLS A DAY

REACTIONS (3)
  - JOINT SWELLING [None]
  - SWELLING FACE [None]
  - FATIGUE [None]
